FAERS Safety Report 9156717 (Version 1)
Quarter: 2013Q1

REPORT INFORMATION
  Report Type: Spontaneous
  Country: CA (occurrence: None)
  Receive Date: 20130208
  Receipt Date: 20130208
  Transmission Date: 20140127
  Serious: Yes (Other)
  Sender: FDA-Public Use
  Company Number: 2012-4169

PATIENT
  Age: 39 Year
  Sex: Female

DRUGS (8)
  1. SOMATULINE [Suspect]
     Indication: ACROMEGALY
     Dosage: 120 MG (120 MG, 1 IN 21 D), SUBCUTANEOUS
     Route: 058
     Dates: start: 20111001
  2. NOVO-RABEPRAZOLE (-RABEPRAZOLE) [Concomitant]
  3. METFORMIN (METFORMIN) [Concomitant]
  4. APO-CILAZAPRIL/ HCTZ (DYNORM PLUS) [Concomitant]
  5. ELAVIL (AMITTRIPTYLINE HYDROCHLORIDE) [Concomitant]
  6. CITALOPRAM (CITALOPRAM) [Concomitant]
  7. BUSCOPAN (HYOSCINE BUTYLBROMIDE) [Concomitant]
  8. DOSTINEX (CABERLINE) [Concomitant]

REACTIONS (2)
  - Thyroid mass [None]
  - Injection site haemorrhage [None]
